FAERS Safety Report 9690391 (Version 4)
Quarter: 2014Q1

REPORT INFORMATION
  Report Type: Spontaneous
  Country: JP (occurrence: JP)
  Receive Date: 20131115
  Receipt Date: 20140103
  Transmission Date: 20141002
  Serious: Yes (Death, Other)
  Sender: FDA-Public Use
  Company Number: JP-OTSUKA-JP-2013-13347

PATIENT
  Age: 88 Year
  Sex: Female

DRUGS (10)
  1. SAMSCA [Suspect]
     Dosage: 7.25 MG MILLIGRAM(S), QD
     Route: 048
     Dates: start: 20130802, end: 20130807
  2. SAMSCA [Suspect]
     Dosage: 7.25 MG MILLIGRAM(S), QD
     Route: 048
     Dates: start: 20130828, end: 20130910
  3. DIURETICS [Concomitant]
     Dosage: UNK
     Route: 042
     Dates: start: 20130721
  4. LASIX [Concomitant]
     Dosage: 40 MG MILLIGRAM(S), QD
     Route: 048
  5. ALDACTONE A [Concomitant]
     Dosage: 25 MG MILLIGRAM(S), BID
     Route: 048
  6. ADALAT L [Concomitant]
     Dosage: 10 MG MILLIGRAM(S), BID
     Route: 048
  7. BAYASPIRIN [Concomitant]
     Dosage: 100 MG MILLIGRAM(S), QD
     Route: 048
  8. AMLODIPINE [Concomitant]
     Dosage: 5 MG MILLIGRAM(S), QD
     Route: 048
  9. HALFDIGOXIN [Concomitant]
     Dosage: 0.125 MG MILLIGRAM(S), QD
     Route: 048
  10. FERROMIA [Concomitant]
     Dosage: 50 MG MILLIGRAM(S), QD
     Route: 048

REACTIONS (3)
  - Hypernatraemia [Recovering/Resolving]
  - Blood urea increased [Unknown]
  - Cardiac failure [Fatal]
